FAERS Safety Report 5638836-1 (Version None)
Quarter: 2008Q1

REPORT INFORMATION
  Report Type: 
  Country: None (occurrence: None)
  Receive Date: 20080226
  Receipt Date: 20080215
  Transmission Date: 20080703
  Serious: Yes (Hospitalization)
  Sender: FDA-Public Use
  Company Number: US-MERCK-0802USA02811

PATIENT
  Age: 79 Year
  Sex: Female

DRUGS (1)
  1. FOSAMAX [Suspect]
     Indication: OSTEOPOROSIS
     Route: 048
     Dates: start: 19960101, end: 20060801

REACTIONS (5)
  - ANAEMIA [None]
  - FEMUR FRACTURE [None]
  - HYPONATRAEMIA [None]
  - POLYMYALGIA RHEUMATICA [None]
  - SPINAL COLUMN STENOSIS [None]
